FAERS Safety Report 11105426 (Version 1)
Quarter: 2015Q2

REPORT INFORMATION
  Report Type: Not Available
  Country: US (occurrence: US)
  Receive Date: 20150512
  Receipt Date: 20150512
  Transmission Date: 20150821
  Serious: No
  Sender: FDA-Public Use
  Company Number: US-LUPIN PHARMACEUTICALS INC.-E2B_00003427

PATIENT
  Age: 58 Year
  Sex: Female
  Weight: 61.29 kg

DRUGS (1)
  1. CEFPROZIL TABLETS USP 500MG [Suspect]
     Active Substance: CEFPROZIL
     Indication: SINUSITIS
     Dates: end: 20150315

REACTIONS (5)
  - Malaise [Recovered/Resolved]
  - Tachycardia [Recovered/Resolved]
  - Diarrhoea [Recovered/Resolved]
  - Headache [Recovered/Resolved]
  - Nausea [Recovered/Resolved]

NARRATIVE: CASE EVENT DATE: 20150315
